FAERS Safety Report 17305236 (Version 4)
Quarter: 2020Q1

REPORT INFORMATION
  Report Type: Report from Study
  Country: None (occurrence: TR)
  Receive Date: 20200123
  Receipt Date: 20200219
  Transmission Date: 20200409
  Serious: Yes (Hospitalization, Other)
  Sender: FDA-Public Use
  Company Number: TR-ABBVIE-20K-161-3237866-00

PATIENT
  Age: 75 Year
  Sex: Male
  Weight: 80 kg

DRUGS (1)
  1. DUODOPA [Suspect]
     Active Substance: CARBIDOPA\LEVODOPA
     Indication: PARKINSON^S DISEASE
     Dosage: MORNING DOSE (ML): 8.00 CONTINUOUS DOSE (ML): 4.30 EXTRA DOSE (ML): 1.50
     Route: 050
     Dates: start: 20200113, end: 20200122

REACTIONS (15)
  - Perforation [Recovered/Resolved]
  - Perforation [Recovered/Resolved]
  - Decubitus ulcer [Not Recovered/Not Resolved]
  - Abdominal distension [Recovered/Resolved]
  - Abdominal pain [Recovered/Resolved]
  - Hypophagia [Recovered/Resolved]
  - Flatulence [Recovered/Resolved]
  - Procedural pain [Recovering/Resolving]
  - C-reactive protein increased [Not Recovered/Not Resolved]
  - Product quality issue [Unknown]
  - Gastrointestinal procedural complication [Recovering/Resolving]
  - Hernia [Unknown]
  - Stoma site discharge [Recovered/Resolved]
  - Oedema peripheral [Not Recovered/Not Resolved]
  - Post procedural discharge [Not Recovered/Not Resolved]

NARRATIVE: CASE EVENT DATE: 202001
